FAERS Safety Report 21550780 (Version 3)
Quarter: 2022Q4

REPORT INFORMATION
  Report Type: Spontaneous
  Country: JP (occurrence: JP)
  Receive Date: 20221103
  Receipt Date: 20221216
  Transmission Date: 20230112
  Serious: Yes (Death, Other)
  Sender: FDA-Public Use
  Company Number: JP-GSKJP-JP2022JPN051865

PATIENT
  Sex: Female

DRUGS (14)
  1. BOTOX [Suspect]
     Active Substance: ONABOTULINUMTOXINA
     Indication: Muscle spasticity
     Dosage: 400 UNITS, SINGLE
     Route: 030
     Dates: start: 20220831, end: 20220831
  2. BOTOX [Suspect]
     Active Substance: ONABOTULINUMTOXINA
     Indication: Muscle spasticity
     Dosage: 400 UNITS, SINGLE
     Route: 030
     Dates: start: 20211208, end: 20211208
  3. BOTOX [Suspect]
     Active Substance: ONABOTULINUMTOXINA
     Dosage: 400 UNITS, SINGLE
     Route: 030
     Dates: start: 20210414, end: 20210414
  4. LASIX [Concomitant]
     Active Substance: FUROSEMIDE
     Indication: Oedema
     Dosage: 40 MG, QD,TABLET
     Dates: start: 20220413, end: 20221011
  5. SODIUM GUALENATE MONOHYDRATE [Concomitant]
     Active Substance: SODIUM GUALENATE MONOHYDRATE
     Indication: Dental disorder prophylaxis
     Dosage: UNK,SEVERAL TIMES A DAY,MOUTH WASH
     Dates: start: 20220622, end: 20221011
  6. GLYCOSAMINOGLYCANS [Concomitant]
     Active Substance: GLYCOSAMINOGLYCANS
     Indication: Dry skin prophylaxis
     Dosage: UNK,CUTANEOUS SOLUTION
     Dates: start: 20220622, end: 20221011
  7. VONOPRAZAN FUMARATE [Concomitant]
     Active Substance: VONOPRAZAN FUMARATE
     Indication: Gastritis prophylaxis
     Dosage: 20 MG, QD,TABLET
     Dates: start: 20220413, end: 20221011
  8. ELIQUIS [Concomitant]
     Active Substance: APIXABAN
     Indication: Thrombosis prophylaxis
     Dosage: 2.5 MG, QD,TABLET
     Dates: start: 20220413, end: 20221011
  9. SAMSCA [Concomitant]
     Active Substance: TOLVAPTAN
     Indication: Oedema
     Dosage: UNK,TABLET
     Dates: start: 20220413, end: 20221011
  10. BIO-THREE COMBINATION [Concomitant]
     Indication: Gastrointestinal disorder
     Dosage: UNK, TID
     Dates: start: 20220413, end: 20221011
  11. CAMOSTAT MESYLATE [Concomitant]
     Active Substance: CAMOSTAT MESYLATE
     Indication: Infection prophylaxis
     Dosage: UNK,TABLET
     Dates: start: 20220413, end: 20221011
  12. MEMANTINE HYDROCHLORIDE [Concomitant]
     Active Substance: MEMANTINE HYDROCHLORIDE
     Indication: Dementia
     Dosage: 100 MG,TABLET
     Dates: start: 20220413, end: 20221011
  13. CALONAL [Concomitant]
     Active Substance: ACETAMINOPHEN
     Indication: Pyrexia
     Dosage: 200 MG, BID
     Dates: start: 20220419, end: 20221011
  14. TULOBUTEROL [Concomitant]
     Active Substance: TULOBUTEROL
     Indication: Chronic obstructive pulmonary disease
     Dosage: 0.5 MG, QD
     Dates: start: 20220413, end: 20221011

REACTIONS (6)
  - Hypokalaemia [Unknown]
  - Pneumonia aspiration [Fatal]
  - Herpes zoster [Not Recovered/Not Resolved]
  - Urinary tract infection [Recovering/Resolving]
  - Constipation [Unknown]
  - Liver disorder [Unknown]

NARRATIVE: CASE EVENT DATE: 20220312
